FAERS Safety Report 6656878-4 (Version None)
Quarter: 2010Q1

REPORT INFORMATION
  Report Type: 
  Country: None (occurrence: None)
  Receive Date: 20100329
  Receipt Date: 20100329
  Transmission Date: 20100710
  Serious: Yes (Other)
  Sender: FDA-Public Use
  Company Number: None

PATIENT
  Age: 7 Year
  Sex: Male
  Weight: 27.2158 kg

DRUGS (1)
  1. VYVANSE [Suspect]
     Indication: ATTENTION DEFICIT/HYPERACTIVITY DISORDER
     Dosage: 20MG ONCE DAILY PO
     Route: 048
     Dates: start: 20100322, end: 20100324

REACTIONS (6)
  - ABDOMINAL PAIN UPPER [None]
  - AMNESIA [None]
  - CRYING [None]
  - FEAR [None]
  - HALLUCINATION, AUDITORY [None]
  - PAIN IN EXTREMITY [None]
